FAERS Safety Report 17047438 (Version 3)
Quarter: 2020Q1

REPORT INFORMATION
  Report Type: Spontaneous
  Country: IT (occurrence: IT)
  Receive Date: 20191119
  Receipt Date: 20200313
  Transmission Date: 20200409
  Serious: Yes (Life-Threatening)
  Sender: FDA-Public Use
  Company Number: IT-ASTRAZENECA-2019SF63172

PATIENT
  Age: 48 Year
  Sex: Female

DRUGS (2)
  1. TICAGRELOR. [Suspect]
     Active Substance: TICAGRELOR
     Indication: ANGIOCARDIOGRAM
     Dosage: ONCE/SINGLE ADMINISTRATION
     Route: 048
  2. ASPIRIN. [Suspect]
     Active Substance: ASPIRIN
     Indication: ANGIOCARDIOGRAM
     Dosage: ONCE/SINGLE ADMINISTRATION
     Route: 048

REACTIONS (3)
  - Liver injury [Recovered/Resolved]
  - Hepatic haematoma [Recovered/Resolved]
  - Wrong technique in product usage process [Unknown]
